FAERS Safety Report 5926593-0 (Version None)
Quarter: 2008Q4

REPORT INFORMATION
  Report Type: 
  Country: None (occurrence: None)
  Receive Date: 20081022
  Receipt Date: 20081009
  Transmission Date: 20090506
  Serious: Yes (Other)
  Sender: FDA-Public Use
  Company Number: US-BAYER-200814024BCC

PATIENT
  Age: 79 Year
  Sex: Female
  Weight: 75 kg

DRUGS (8)
  1. ASPIRIN [Suspect]
     Indication: ISCHAEMIC HEART DISEASE PROPHYLAXIS
     Dosage: TOTAL DAILY DOSE: 325 MG  UNIT DOSE: 325 MG
  2. LIPITOR [Concomitant]
  3. COZAAR [Concomitant]
  4. VITAMIN E [Concomitant]
  5. VITAMIN B6 [Concomitant]
  6. VITAMIN D [Concomitant]
  7. VITAMIN B-12 [Concomitant]
  8. BLOOD PRESSURE MEDICATION (NOS) [Concomitant]

REACTIONS (2)
  - CONTUSION [None]
  - NEOPLASM MALIGNANT [None]
